FAERS Safety Report 4787946-X (Version None)
Quarter: 2005Q3

REPORT INFORMATION
  Report Type: 
  Country: None (occurrence: None)
  Receive Date: 20050926
  Receipt Date: 20050715
  Transmission Date: 20060218
  Serious: Yes (Other)
  Sender: FDA-Public Use
  Company Number: 215748

PATIENT
  Age: 49 Year
  Sex: Female
  Weight: 65.8 kg

DRUGS (3)
  1. AVASTIN [Suspect]
     Indication: COLON CANCER
     Dosage: 300 MG, Q2W, INTRAVENOUS
     Route: 042
     Dates: start: 20050309
  2. IRINOTECAN HCL [Concomitant]
  3. FLUOROURACIL [Concomitant]

REACTIONS (1)
  - THROMBOCYTOPENIA [None]
